FAERS Safety Report 9673301 (Version 2)
Quarter: 2014Q1

REPORT INFORMATION
  Report Type: Spontaneous
  Country: US (occurrence: US)
  Receive Date: 20131106
  Receipt Date: 20140102
  Transmission Date: 20141002
  Serious: Yes (Other)
  Sender: FDA-Public Use
  Company Number: US-AMGEN-USASP2013071086

PATIENT
  Age: 48 Year
  Sex: Male

DRUGS (2)
  1. ENBREL [Suspect]
     Indication: PSORIASIS
     Dosage: 50 MG, 2 TIMES/WK
     Route: 058
     Dates: start: 201305, end: 20130917
  2. CLOBETASOL [Concomitant]
     Indication: PSORIASIS
     Dosage: 0.05 %, BID
     Route: 061
     Dates: start: 201204

REACTIONS (2)
  - Optic neuritis [Recovering/Resolving]
  - Drug hypersensitivity [Unknown]
